FAERS Safety Report 12865912 (Version 1)
Quarter: 2016Q4

REPORT INFORMATION
  Report Type: Report from Study
  Country: US (occurrence: US)
  Receive Date: 20161020
  Receipt Date: 20161020
  Transmission Date: 20170207
  Serious: Yes (Hospitalization)
  Sender: FDA-Public Use
  Company Number: US-MALLINCKRODT-T201604942

PATIENT
  Sex: Male

DRUGS (2)
  1. REPOSITORY CORTICOTROPIN INJECTION [Suspect]
     Active Substance: CORTICOTROPIN
     Dosage: 40 UNITS DAILY FOR 4 DAYS FOLLOWED BY 20 UNITS DAILY FOR 3 DAYS
     Route: 065
  2. REPOSITORY CORTICOTROPIN INJECTION [Suspect]
     Active Substance: CORTICOTROPIN
     Indication: MULTIPLE SCLEROSIS
     Dosage: UNKNOWN DOSE/FREQUENCY
     Route: 065
     Dates: start: 200707

REACTIONS (3)
  - Fall [Unknown]
  - Cerebrovascular accident [Unknown]
  - Dysarthria [Unknown]

NARRATIVE: CASE EVENT DATE: 2016
